FAERS Safety Report 17760055 (Version 1)
Quarter: 2020Q2

REPORT INFORMATION
  Report Type: Report from Study
  Country: JP (occurrence: JP)
  Receive Date: 20200508
  Receipt Date: 20200508
  Transmission Date: 20200714
  Serious: Yes (Other)
  Sender: FDA-Public Use
  Company Number: JP-MYLANLABS-2020M1044146

PATIENT

DRUGS (2)
  1. CARBOPLATIN. [Suspect]
     Active Substance: CARBOPLATIN
     Indication: NON-SMALL CELL LUNG CANCER
     Dosage: SCHEDULED TO RECEIVE CHEMOTHERAPY WITH CARBOPLATIN AT AUC 2 OVER A 30 MINUTE PERIOD ON DAY 1, 8, 22
     Route: 065
  2. VINORELBINE [Suspect]
     Active Substance: VINORELBINE TARTRATE
     Indication: NON-SMALL CELL LUNG CANCER
     Dosage: 15 MILLIGRAM/SQ. METER, SCHEDULED TO RECEIVE CHEMOTHERAPY WITH VINORELBINE OF THE BODY SURFACE AREA
     Route: 065

REACTIONS (1)
  - Oesophagitis [Unknown]
